FAERS Safety Report 4427578-6 (Version None)
Quarter: 2004Q3

REPORT INFORMATION
  Report Type: 
  Country: None (occurrence: None)
  Receive Date: 20040817
  Receipt Date: 20030130
  Transmission Date: 20050211
  Serious: Yes (Death, Disabling, Other)
  Sender: FDA-Public Use
  Company Number: US-MERCK-0302USA00071

PATIENT
  Age: 46 Year
  Sex: Female
  Weight: 68 kg

DRUGS (2)
  1. VIOXX [Suspect]
     Indication: CHEST PAIN
     Route: 048
     Dates: start: 20010701, end: 20010901
  2. VIOXX [Suspect]
     Indication: BACK PAIN
     Route: 048
     Dates: start: 20010701, end: 20010901

REACTIONS (5)
  - CARCINOMA [None]
  - CEREBROVASCULAR ACCIDENT [None]
  - DEATH [None]
  - MALAISE [None]
  - PRESCRIBED OVERDOSE [None]
